FAERS Safety Report 16038163 (Version 2)
Quarter: 2019Q1

REPORT INFORMATION
  Report Type: Spontaneous
  Country: US (occurrence: US)
  Receive Date: 20190305
  Receipt Date: 20190307
  Transmission Date: 20190418
  Serious: Yes (Other)
  Sender: FDA-Public Use
  Company Number: US-ASTRAZENECA-2018SF26204

PATIENT
  Age: 22780 Day
  Sex: Female

DRUGS (10)
  1. ROSUVASTATIN. [Concomitant]
     Active Substance: ROSUVASTATIN
  2. PRILOSEC OTC [Suspect]
     Active Substance: OMEPRAZOLE MAGNESIUM
     Route: 048
     Dates: start: 20140101, end: 20180101
  3. TRAMADOL HYDROCHLORIDE. [Concomitant]
     Active Substance: TRAMADOL HYDROCHLORIDE
  4. LOVASTATIN. [Concomitant]
     Active Substance: LOVASTATIN
  5. LISINOPRIL. [Concomitant]
     Active Substance: LISINOPRIL
  6. VITAMIN D [Concomitant]
     Active Substance: CHOLECALCIFEROL
  7. PRAVASTATIN. [Concomitant]
     Active Substance: PRAVASTATIN
  8. CARVEDIOL [Concomitant]
     Active Substance: CARVEDILOL
  9. PRILOSEC [Suspect]
     Active Substance: OMEPRAZOLE MAGNESIUM
     Route: 048
     Dates: start: 20140101, end: 20180101
  10. GABAPENTIN. [Concomitant]
     Active Substance: GABAPENTIN

REACTIONS (2)
  - Chronic kidney disease [Unknown]
  - Renal injury [Unknown]

NARRATIVE: CASE EVENT DATE: 20170606
